FAERS Safety Report 13448858 (Version 1)
Quarter: 2017Q2

REPORT INFORMATION
  Report Type: Spontaneous
  Country: US (occurrence: US)
  Receive Date: 20170417
  Receipt Date: 20170417
  Transmission Date: 20170830
  Serious: No
  Sender: FDA-Public Use
  Company Number: US-SHIONOGI, INC-2016001106

PATIENT
  Age: 66 Year
  Sex: Female

DRUGS (2)
  1. OSPHENA [Suspect]
     Active Substance: OSPEMIFENE
     Dosage: 60 MG, QD
     Route: 048
     Dates: start: 201608, end: 20161127
  2. OSPHENA [Suspect]
     Active Substance: OSPEMIFENE
     Indication: DYSPAREUNIA
     Dosage: 60 MG HALF A PILL, QD
     Route: 048
     Dates: start: 20141101, end: 201608

REACTIONS (4)
  - Night sweats [Recovered/Resolved]
  - Accidental underdose [Unknown]
  - Burning sensation [Recovered/Resolved]
  - Hot flush [Recovered/Resolved]

NARRATIVE: CASE EVENT DATE: 20160829
